FAERS Safety Report 18507346 (Version 1)
Quarter: 2020Q4

REPORT INFORMATION
  Report Type: Spontaneous
  Country: US (occurrence: US)
  Receive Date: 20201116
  Receipt Date: 20201116
  Transmission Date: 20210114
  Serious: No
  Sender: FDA-Public Use
  Company Number: None

PATIENT
  Age: 77 Year
  Sex: Male
  Weight: 90 kg

DRUGS (22)
  1. XPOVIO [Suspect]
     Active Substance: SELINEXOR
     Indication: PLASMA CELL MYELOMA
     Route: 048
     Dates: end: 20201116
  2. VITAMIN D3 [Concomitant]
     Active Substance: CHOLECALCIFEROL
  3. VITAMIN E [Concomitant]
     Active Substance: .ALPHA.-TOCOPHEROL
  4. ASPIRIN ADULT LOW STRENGTH [Concomitant]
     Active Substance: ASPIRIN
  5. SUPER B COMPLEX MAXI [Concomitant]
  6. VITAMIN A [Concomitant]
     Active Substance: VITAMIN A
  7. EMPLICITI [Concomitant]
     Active Substance: ELOTUZUMAB
  8. AMINO ACIDS COMPLEX [Concomitant]
  9. FLAXSEED [Concomitant]
     Active Substance: FLAX SEED
  10. VITAMIN B [Concomitant]
     Active Substance: VITAMIN B
  11. MINERAL COMPLEX [Concomitant]
  12. TURMERIC [Concomitant]
     Active Substance: HERBALS\TURMERIC
  13. COLACE [Concomitant]
     Active Substance: DOCUSATE SODIUM
  14. PROBIOTIC ACIDOPHILUS [Concomitant]
     Active Substance: LACTOBACILLUS ACIDOPHILUS
  15. OMEGA 3 500 [Concomitant]
  16. ONDANSETRON HCL [Concomitant]
     Active Substance: ONDANSETRON HYDROCHLORIDE
  17. FOLIC ACID. [Concomitant]
     Active Substance: FOLIC ACID
  18. SUPER C COMPLEX [Concomitant]
  19. DEXAMETHASONE. [Concomitant]
     Active Substance: DEXAMETHASONE
  20. GIN-ZING [Concomitant]
  21. VITAMIN C [Concomitant]
     Active Substance: ASCORBIC ACID
  22. MELATONIN [Concomitant]
     Active Substance: MELATONIN

REACTIONS (1)
  - Disease progression [None]

NARRATIVE: CASE EVENT DATE: 20201116
